FAERS Safety Report 21781032 (Version 1)
Quarter: 2022Q4

REPORT INFORMATION
  Report Type: Spontaneous
  Country: ES (occurrence: ES)
  Receive Date: 20221227
  Receipt Date: 20221227
  Transmission Date: 20230113
  Serious: Yes (Other)
  Sender: FDA-Public Use
  Company Number: ES-MLMSERVICE-20221212-3975769-1

PATIENT

DRUGS (1)
  1. SERTRALINE [Suspect]
     Active Substance: SERTRALINE HYDROCHLORIDE
     Indication: Persistent depressive disorder
     Dosage: UNK
     Route: 065

REACTIONS (1)
  - Colitis microscopic [Recovering/Resolving]
